FAERS Safety Report 6904788-7 (Version None)
Quarter: 2010Q3

REPORT INFORMATION
  Report Type: 
  Country: None (occurrence: None)
  Receive Date: 20100804
  Receipt Date: 20090706
  Transmission Date: 20110219
  Serious: Yes (Hospitalization)
  Sender: FDA-Public Use
  Company Number: US-PFIZER INC-2009213236

PATIENT

DRUGS (1)
  1. LYRICA [Suspect]

REACTIONS (1)
  - AGITATION [None]
